FAERS Safety Report 10057211 (Version 1)
Quarter: 2014Q2

REPORT INFORMATION
  Report Type: Spontaneous
  Country: RU (occurrence: RU)
  Receive Date: 20140403
  Receipt Date: 20140403
  Transmission Date: 20141212
  Serious: Yes (Life-Threatening)
  Sender: FDA-Public Use
  Company Number: RU-BAYER-2014-046127

PATIENT
  Age: 42 Year
  Sex: Male

DRUGS (1)
  1. ASPIRIN [Suspect]
     Route: 048

REACTIONS (2)
  - Laryngeal oedema [Recovered/Resolved]
  - Urticaria [Recovered/Resolved]
